FAERS Safety Report 4792686-7 (Version None)
Quarter: 2005Q4

REPORT INFORMATION
  Report Type: 
  Country: None (occurrence: None)
  Receive Date: 20051010
  Receipt Date: 20050929
  Transmission Date: 20060501
  Serious: Yes (Hospitalization, Other)
  Sender: FDA-Public Use
  Company Number: US-MERCK-0510USA00356

PATIENT
  Age: 56 Year
  Sex: Female
  Weight: 68 kg

DRUGS (4)
  1. VIOXX [Suspect]
     Indication: ARTHRITIS
     Route: 048
     Dates: start: 19980101, end: 20030101
  2. SYNTHROID [Concomitant]
     Route: 065
  3. CITRUCEL [Concomitant]
     Route: 065
  4. ASPIRIN [Concomitant]
     Route: 065

REACTIONS (3)
  - BLADDER DISORDER [None]
  - CEREBROVASCULAR ACCIDENT [None]
  - INTESTINAL HAEMORRHAGE [None]
